FAERS Safety Report 20877909 (Version 1)
Quarter: 2022Q2

REPORT INFORMATION
  Report Type: Spontaneous
  Country: US (occurrence: None)
  Receive Date: 20220526
  Receipt Date: 20220526
  Transmission Date: 20220721
  Serious: Yes (Hospitalization)
  Sender: FDA-Public Use
  Company Number: None

PATIENT
  Age: 72 Year
  Sex: Female

DRUGS (1)
  1. COLISTIMETHATE SODIUM [Suspect]
     Active Substance: COLISTIMETHATE SODIUM
     Indication: Bacterial infection
     Dosage: 75MG TWICE DAILY  NEBULIZER?
     Route: 050
     Dates: start: 202205

REACTIONS (4)
  - Adverse drug reaction [None]
  - Swelling [None]
  - Pulmonary oedema [None]
  - Myocardial infarction [None]

NARRATIVE: CASE EVENT DATE: 20220515
